FAERS Safety Report 16151288 (Version 2)
Quarter: 2019Q3

REPORT INFORMATION
  Report Type: Spontaneous
  Country: DE (occurrence: DE)
  Receive Date: 20190402
  Receipt Date: 20190830
  Transmission Date: 20191004
  Serious: Yes (Hospitalization, Disabling, Other)
  Sender: FDA-Public Use
  Company Number: DE-AUROBINDO-AUR-APL-2019-016670

PATIENT

DRUGS (1)
  1. SILDENAFIL. [Suspect]
     Active Substance: SILDENAFIL
     Indication: PRODUCT USED FOR UNKNOWN INDICATION
     Dosage: 50 MILLIGRAM
     Route: 065

REACTIONS (5)
  - Retinal artery occlusion [Recovered/Resolved]
  - Blindness unilateral [Unknown]
  - Retinal ischaemia [Recovered/Resolved]
  - Macular oedema [Recovered/Resolved]
  - Blindness [Not Recovered/Not Resolved]
